FAERS Safety Report 24976872 (Version 1)
Quarter: 2025Q1

REPORT INFORMATION
  Report Type: Spontaneous
  Country: ES (occurrence: ES)
  Receive Date: 20250217
  Receipt Date: 20250217
  Transmission Date: 20250408
  Serious: Yes (Hospitalization)
  Sender: RHYTHM PHARMACEUTICALS, INC.
  Company Number: ES-PPDUS-2025RHM000017

PATIENT
  Age: 10 Year
  Sex: Male

DRUGS (1)
  1. IMCIVREE [Suspect]
     Active Substance: SETMELANOTIDE
     Indication: Laurence-Moon-Bardet-Biedl syndrome
     Route: 065

REACTIONS (4)
  - Surgery [Recovered/Resolved]
  - Intentional dose omission [Recovered/Resolved]
  - Therapy interrupted [Recovered/Resolved]
  - Device dispensing error [Recovered/Resolved]

NARRATIVE: CASE EVENT DATE: 20241231
